FAERS Safety Report 7331748-7 (Version None)
Quarter: 2011Q1

REPORT INFORMATION
  Report Type: 
  Country: None (occurrence: None)
  Receive Date: 20110304
  Receipt Date: 20110224
  Transmission Date: 20110831
  Serious: Yes (Other)
  Sender: FDA-Public Use
  Company Number: US-SANOFI-AVENTIS-2011SA012062

PATIENT
  Age: 77 Year
  Sex: Male

DRUGS (7)
  1. DILTIAZEM [Concomitant]
  2. MIRTAZAPINE [Concomitant]
  3. PLAVIX [Suspect]
     Route: 048
     Dates: start: 20070101, end: 20090501
  4. CALCIUM/VITAMIN D [Concomitant]
  5. ASPIRIN [Concomitant]
  6. VYTORIN [Concomitant]
  7. PLAVIX [Suspect]
     Route: 048
     Dates: start: 20090501

REACTIONS (2)
  - RASH GENERALISED [None]
  - AORTIC STENOSIS [None]
